FAERS Safety Report 24632233 (Version 1)
Quarter: 2024Q4

REPORT INFORMATION
  Report Type: Spontaneous
  Country: US (occurrence: None)
  Receive Date: 20241118
  Receipt Date: 20241118
  Transmission Date: 20250115
  Serious: No
  Sender: Public
  Company Number: None

PATIENT
  Sex: 0

DRUGS (1)
  1. VUMERITY [Suspect]
     Active Substance: DIROXIMEL FUMARATE

REACTIONS (7)
  - Migraine [None]
  - Hyperhidrosis [None]
  - Headache [None]
  - Abdominal pain upper [None]
  - Magnetic resonance imaging abnormal [None]
  - Central nervous system lesion [None]
  - Intervertebral disc disorder [None]
